FAERS Safety Report 7137755-1 (Version None)
Quarter: 2010Q4

REPORT INFORMATION
  Report Type: 
  Country: None (occurrence: None)
  Receive Date: 20101206
  Receipt Date: 20101129
  Transmission Date: 20110411
  Serious: Yes (Other)
  Sender: FDA-Public Use
  Company Number: PHHY2010US81368

PATIENT
  Sex: Female

DRUGS (5)
  1. COARTEM [Suspect]
     Dosage: 120 MG
  2. KETEK [Concomitant]
  3. PLAQUENIL [Concomitant]
  4. MEPRON [Concomitant]
  5. MALARONE [Concomitant]

REACTIONS (8)
  - COLD SWEAT [None]
  - DIZZINESS [None]
  - FEELING ABNORMAL [None]
  - FEELING COLD [None]
  - INSOMNIA [None]
  - PAIN [None]
  - PALPITATIONS [None]
  - TACHYPHRENIA [None]
